FAERS Safety Report 14999503 (Version 1)
Quarter: 2018Q2

REPORT INFORMATION
  Report Type: Spontaneous
  Country: DE (occurrence: DE)
  Receive Date: 20180612
  Receipt Date: 20180612
  Transmission Date: 20180711
  Serious: Yes (Hospitalization)
  Sender: FDA-Public Use
  Company Number: DE-TEVA-2018-DE-904282

PATIENT
  Age: 63 Year
  Sex: Male

DRUGS (1)
  1. TRIMIPRAMINE [Suspect]
     Active Substance: TRIMIPRAMINE
     Dosage: NK MG, NK
     Route: 065

REACTIONS (3)
  - Sleep disorder [Unknown]
  - Stress [Unknown]
  - Syncope [Unknown]
